FAERS Safety Report 18999629 (Version 5)
Quarter: 2021Q3

REPORT INFORMATION
  Report Type: Report from Study
  Country: US (occurrence: US)
  Receive Date: 20210311
  Receipt Date: 20210810
  Transmission Date: 20211014
  Serious: Yes (Hospitalization)
  Sender: FDA-Public Use
  Company Number: US-TAKEDA-2021TUS015088

PATIENT
  Age: 54 Year
  Sex: Female

DRUGS (20)
  1. TEDUGLUTIDE [Suspect]
     Active Substance: TEDUGLUTIDE
     Indication: SHORT-BOWEL SYNDROME
     Dosage: 2 MILLIGRAM, QD
     Route: 058
     Dates: start: 20201223
  2. TEDUGLUTIDE [Suspect]
     Active Substance: TEDUGLUTIDE
     Dosage: 1.52 MILLIGRAM
     Route: 058
     Dates: start: 20201222
  3. TEDUGLUTIDE [Suspect]
     Active Substance: TEDUGLUTIDE
     Dosage: 1.52 MILLIGRAM
     Route: 058
     Dates: start: 202103
  4. TEDUGLUTIDE [Suspect]
     Active Substance: TEDUGLUTIDE
     Indication: SHORT-BOWEL SYNDROME
     Dosage: 2 MILLIGRAM, QD
     Route: 058
     Dates: start: 20201223
  5. TEDUGLUTIDE [Suspect]
     Active Substance: TEDUGLUTIDE
     Dosage: 1.52 MILLIGRAM
     Route: 058
     Dates: start: 202103
  6. TEDUGLUTIDE [Suspect]
     Active Substance: TEDUGLUTIDE
     Dosage: 1.52 MILLIGRAM
     Route: 058
     Dates: start: 202103
  7. TEDUGLUTIDE [Suspect]
     Active Substance: TEDUGLUTIDE
     Dosage: 1.52 MILLIGRAM, QD
     Route: 058
     Dates: start: 20201223
  8. TEDUGLUTIDE [Suspect]
     Active Substance: TEDUGLUTIDE
     Indication: SHORT-BOWEL SYNDROME
     Dosage: 2 MILLIGRAM, QD
     Route: 058
     Dates: start: 20201223
  9. TEDUGLUTIDE [Suspect]
     Active Substance: TEDUGLUTIDE
     Dosage: 0.3 DOSAGE FORM, QD
     Route: 050
  10. TEDUGLUTIDE [Suspect]
     Active Substance: TEDUGLUTIDE
     Dosage: 1.52 MILLIGRAM
     Route: 058
     Dates: start: 20201222
  11. TEDUGLUTIDE [Suspect]
     Active Substance: TEDUGLUTIDE
     Dosage: 1.52 MILLIGRAM
     Route: 058
     Dates: start: 20201222
  12. TEDUGLUTIDE [Suspect]
     Active Substance: TEDUGLUTIDE
     Dosage: 1.52 MILLIGRAM
     Route: 058
     Dates: start: 202103
  13. TEDUGLUTIDE [Suspect]
     Active Substance: TEDUGLUTIDE
     Dosage: 1.52 MILLIGRAM, QD
     Route: 058
     Dates: start: 20201223
  14. TEDUGLUTIDE [Suspect]
     Active Substance: TEDUGLUTIDE
     Dosage: 0.3 DOSAGE FORM, QD
     Route: 050
  15. TEDUGLUTIDE [Suspect]
     Active Substance: TEDUGLUTIDE
     Dosage: 0.3 DOSAGE FORM, QD
     Route: 050
  16. TEDUGLUTIDE [Suspect]
     Active Substance: TEDUGLUTIDE
     Dosage: 1.52 MILLIGRAM, QD
     Route: 058
     Dates: start: 20201223
  17. TEDUGLUTIDE [Suspect]
     Active Substance: TEDUGLUTIDE
     Dosage: 1.52 MILLIGRAM, QD
     Route: 058
     Dates: start: 20201223
  18. TEDUGLUTIDE [Suspect]
     Active Substance: TEDUGLUTIDE
     Indication: SHORT-BOWEL SYNDROME
     Dosage: 2 MILLIGRAM, QD
     Route: 058
     Dates: start: 20201223
  19. TEDUGLUTIDE [Suspect]
     Active Substance: TEDUGLUTIDE
     Dosage: 0.3 DOSAGE FORM, QD
     Route: 050
  20. TEDUGLUTIDE [Suspect]
     Active Substance: TEDUGLUTIDE
     Dosage: 1.52 MILLIGRAM
     Route: 058
     Dates: start: 20201222

REACTIONS (6)
  - Drug ineffective [Unknown]
  - Abdominal pain upper [Unknown]
  - Product dose omission issue [Recovering/Resolving]
  - Diarrhoea [Unknown]
  - Fear of eating [Unknown]
  - Asthenia [Unknown]

NARRATIVE: CASE EVENT DATE: 20210219
